FAERS Safety Report 9623998 (Version 1)
Quarter: 2013Q4

REPORT INFORMATION
  Report Type: Spontaneous
  Country: US (occurrence: US)
  Receive Date: 20131015
  Receipt Date: 20131015
  Transmission Date: 20140711
  Serious: No
  Sender: FDA-Public Use
  Company Number: US-BAUSCH-BL-2013-004701

PATIENT
  Age: 73 Year
  Sex: Female

DRUGS (5)
  1. LATANOPROST OPHTHALMIC SOLUTION 0.005% [Suspect]
     Indication: GLAUCOMA
     Dosage: ONE DROP INTO RIGHT EYE AT BEDTIME
     Route: 047
     Dates: start: 201306
  2. LATANOPROST OPHTHALMIC SOLUTION 0.005% [Suspect]
     Dosage: ONE DROP INTO LEFT EYE AT BEDTIME
     Route: 047
     Dates: start: 201306
  3. GENTEAL [Concomitant]
     Indication: DRY EYE
  4. LORAZEPAM [Concomitant]
  5. HYDROXYZINE [Concomitant]
     Indication: ANTIALLERGIC THERAPY

REACTIONS (2)
  - Vision blurred [Not Recovered/Not Resolved]
  - Migraine with aura [Not Recovered/Not Resolved]
